FAERS Safety Report 6125348-4 (Version None)
Quarter: 2009Q1

REPORT INFORMATION
  Report Type: 
  Country: None (occurrence: None)
  Receive Date: 20090318
  Receipt Date: 20090309
  Transmission Date: 20090719
  Serious: Yes (Other)
  Sender: FDA-Public Use
  Company Number: 2008-0410

PATIENT
  Age: 51 Year
  Sex: Female

DRUGS (4)
  1. CEFUROXIME [Suspect]
     Dosage: 4.5GM, 3 DIVIDED DOSES
  2. AMLODIPINE BESYLATE [Concomitant]
  3. ETACRYNIC ACID [Concomitant]
  4. OXYCODONE HCL [Concomitant]

REACTIONS (4)
  - COMPLEMENT FACTOR C3 DECREASED [None]
  - COMPLEMENT FACTOR C4 DECREASED [None]
  - HAEMOGLOBIN DECREASED [None]
  - TUBULOINTERSTITIAL NEPHRITIS [None]
